FAERS Safety Report 23751755 (Version 1)
Quarter: 2024Q2

REPORT INFORMATION
  Report Type: Spontaneous
  Country: GB (occurrence: GB)
  Receive Date: 20240417
  Receipt Date: 20240417
  Transmission Date: 20240716
  Serious: Yes (Hospitalization, Disabling, Other)
  Sender: FDA-Public Use
  Company Number: None

PATIENT
  Age: 26 Year
  Sex: Female
  Weight: 54 kg

DRUGS (3)
  1. MIRENA [Suspect]
     Active Substance: LEVONORGESTREL
     Indication: Contraception
     Dosage: 20?G/DAY
     Route: 015
     Dates: start: 20240326, end: 20240402
  2. CLINDAMYCIN [Concomitant]
     Active Substance: CLINDAMYCIN
     Indication: Acne
     Dates: start: 20231201
  3. TRETINOIN [Concomitant]
     Active Substance: TRETINOIN
     Indication: Acne
     Dates: start: 20231201

REACTIONS (18)
  - Back pain [Recovered/Resolved with Sequelae]
  - Medication error [Unknown]
  - Pain in extremity [Recovering/Resolving]
  - Flashback [Not Recovered/Not Resolved]
  - Sleep terror [Not Recovered/Not Resolved]
  - Panic attack [Not Recovered/Not Resolved]
  - Abdominal pain lower [Recovering/Resolving]
  - Nausea [Recovered/Resolved]
  - Procedural haemorrhage [None]
  - Crying [None]
  - Tremor [None]
  - Screaming [None]
  - Retching [None]
  - Dizziness [None]
  - Vomiting [None]
  - Procedural pain [None]
  - Nightmare [None]
  - Loss of personal independence in daily activities [None]

NARRATIVE: CASE EVENT DATE: 20240326
